FAERS Safety Report 23447021 (Version 3)
Quarter: 2024Q2

REPORT INFORMATION
  Report Type: Spontaneous
  Country: IN (occurrence: IN)
  Receive Date: 20240126
  Receipt Date: 20240624
  Transmission Date: 20240716
  Serious: Yes (Other)
  Sender: FDA-Public Use
  Company Number: IN-PFIZER INC-PV202300025192

PATIENT
  Age: 66 Year
  Sex: Male
  Weight: 69 kg

DRUGS (6)
  1. CRIZOTINIB [Suspect]
     Active Substance: CRIZOTINIB
     Dosage: 250 MG
     Route: 048
     Dates: start: 20221115
  2. CRIZOTINIB [Suspect]
     Active Substance: CRIZOTINIB
     Dosage: 250 MG
     Route: 048
     Dates: start: 20221203, end: 20221205
  3. CRIZOTINIB [Suspect]
     Active Substance: CRIZOTINIB
     Dosage: 250 MG
     Route: 048
     Dates: start: 20221217, end: 20230108
  4. CRIZOTINIB [Suspect]
     Active Substance: CRIZOTINIB
     Dosage: 250 MG, 1-0-1 X 1 MONTH
  5. MINERAL OIL [Concomitant]
     Active Substance: MINERAL OIL
     Dosage: UNK
  6. MILK OF MAGNESIA [Concomitant]
     Active Substance: MAGNESIUM HYDROXIDE
     Dosage: 30 ML, 1X/DAY (0-0-1 X 10 DAYS)

REACTIONS (13)
  - Blood pressure systolic increased [Unknown]
  - Cough [Not Recovered/Not Resolved]
  - Dyspnoea [Unknown]
  - Left ventricular hypertrophy [Unknown]
  - Respiratory rate increased [Unknown]
  - Abdominal discomfort [Unknown]
  - Blood pressure diastolic increased [Unknown]
  - Pollakiuria [Unknown]
  - Mean arterial pressure increased [Unknown]
  - Oedema peripheral [Unknown]
  - Wheezing [Unknown]
  - Pallor [Unknown]
  - Toothache [Unknown]

NARRATIVE: CASE EVENT DATE: 20221119
